FAERS Safety Report 15310132 (Version 1)
Quarter: 2018Q3

REPORT INFORMATION
  Report Type: Spontaneous
  Country: US (occurrence: US)
  Receive Date: 20180823
  Receipt Date: 20180823
  Transmission Date: 20181010
  Serious: Yes (Other)
  Sender: FDA-Public Use
  Company Number: US-PFIZER INC-2018336691

PATIENT
  Age: 66 Year
  Sex: Male
  Weight: 72.57 kg

DRUGS (2)
  1. IRINOTECAN HCL [Suspect]
     Active Substance: IRINOTECAN HYDROCHLORIDE
     Indication: NEOPLASM MALIGNANT
     Dosage: INTRAVENOUSLY, EVERY OTHER WEEK
     Route: 042
  2. FLUOROURACIL. [Suspect]
     Active Substance: FLUOROURACIL
     Indication: NEOPLASM MALIGNANT
     Dosage: UNK

REACTIONS (7)
  - Cerebrovascular accident [Unknown]
  - Gait disturbance [Unknown]
  - Limb discomfort [Unknown]
  - Road traffic accident [Unknown]
  - Sensory disturbance [Unknown]
  - Muscle disorder [Unknown]
  - Pain in extremity [Unknown]
